FAERS Safety Report 5862055-7 (Version None)
Quarter: 2008Q3

REPORT INFORMATION
  Report Type: 
  Country: None (occurrence: None)
  Receive Date: 20080827
  Receipt Date: 20080827
  Transmission Date: 20090109
  Serious: Yes (Hospitalization)
  Sender: FDA-Public Use
  Company Number: None

PATIENT
  Age: 32 Year
  Sex: Female
  Weight: 58.0604 kg

DRUGS (1)
  1. YAZ [Suspect]
     Indication: ACNE
     Dosage: 1 PILL EVERY DAY PO
     Route: 048
     Dates: start: 20080301, end: 20080820

REACTIONS (2)
  - DYSPNOEA [None]
  - PULMONARY EMBOLISM [None]
